FAERS Safety Report 9838586 (Version 1)
Quarter: 2014Q1

REPORT INFORMATION
  Report Type: Spontaneous
  Country: US (occurrence: US)
  Receive Date: 20140123
  Receipt Date: 20140123
  Transmission Date: 20141002
  Serious: No
  Sender: FDA-Public Use
  Company Number: US-TEVA-457972USA

PATIENT
  Age: 30 Year
  Sex: Female
  Weight: 109.87 kg

DRUGS (2)
  1. PARAGARD 380A [Suspect]
     Indication: CONTRACEPTION
     Route: 015
  2. DIGOXIN [Concomitant]
     Indication: VENTRICULAR TACHYCARDIA
     Dosage: .25 MILLIGRAM DAILY;
     Route: 048

REACTIONS (2)
  - Furuncle [Not Recovered/Not Resolved]
  - Vaginal haemorrhage [Not Recovered/Not Resolved]
